FAERS Safety Report 9995886 (Version 2)
Quarter: 2014Q1

REPORT INFORMATION
  Report Type: Spontaneous
  Country: US (occurrence: US)
  Receive Date: 20140311
  Receipt Date: 20140318
  Transmission Date: 20141002
  Serious: Yes (Other)
  Sender: FDA-Public Use
  Company Number: US-009507513-1403USA004207

PATIENT
  Sex: Female

DRUGS (4)
  1. EMEND FOR INJECTION [Suspect]
     Indication: PROPHYLAXIS OF NAUSEA AND VOMITING
     Dosage: 150 MG INFUSED OVER 20-30 MINUTES
     Route: 042
     Dates: start: 20140227, end: 20140227
  2. EMEND FOR INJECTION [Suspect]
     Dosage: 1ST ROUND
     Route: 042
     Dates: start: 20140213, end: 20140213
  3. CISPLATIN [Concomitant]
     Dosage: UNK
  4. DOXORUBICIN [Concomitant]
     Dosage: UNK

REACTIONS (3)
  - Throat tightness [Recovered/Resolved]
  - Erythema [Recovered/Resolved]
  - Dyspnoea [Recovered/Resolved]
